FAERS Safety Report 11069883 (Version 3)
Quarter: 2015Q2

REPORT INFORMATION
  Report Type: Spontaneous
  Country: BG (occurrence: BG)
  Receive Date: 20150427
  Receipt Date: 20150601
  Transmission Date: 20150821
  Serious: Yes (Hospitalization, Other)
  Sender: FDA-Public Use
  Company Number: BG-AMGEN-BGRSP2015039824

PATIENT
  Age: 68 Year
  Sex: Female
  Weight: 66 kg

DRUGS (6)
  1. 5-FU                               /00098801/ [Concomitant]
     Active Substance: FLUOROURACIL
     Dosage: 1680 MG, UNK
     Route: 042
     Dates: start: 20140725, end: 20141023
  2. VECTIBIX [Suspect]
     Active Substance: PANITUMUMAB
     Indication: COLORECTAL CANCER METASTATIC
     Dosage: 6 MG/KG, EVERY 14 DAYS
     Route: 042
     Dates: start: 20140704
  3. LEUCOVORIN                         /00566701/ [Concomitant]
     Active Substance: LEUCOVORIN
     Indication: COLORECTAL CANCER METASTATIC
     Dosage: 340 MG, UNK
     Route: 042
     Dates: start: 20140725, end: 20141023
  4. XELODA [Concomitant]
     Active Substance: CAPECITABINE
     Dosage: UNK
  5. OXALIPLATIN. [Concomitant]
     Active Substance: OXALIPLATIN
     Indication: COLORECTAL CANCER METASTATIC
     Dosage: 140 MG, UNK
     Route: 042
     Dates: start: 20140725, end: 20141023
  6. XELOX [Concomitant]
     Active Substance: CAPECITABINE\OXALIPLATIN
     Indication: COLORECTAL CANCER METASTATIC
     Dosage: UNK
     Dates: start: 20150130

REACTIONS (10)
  - Metastases to abdominal wall [Unknown]
  - Ascites [Unknown]
  - General physical health deterioration [Unknown]
  - Cerebrovascular accident [Unknown]
  - Metastases to spleen [Unknown]
  - Hepatic cancer metastatic [Unknown]
  - Disease progression [Unknown]
  - Monoparesis [Recovered/Resolved]
  - Mobility decreased [Unknown]
  - Rash [Unknown]

NARRATIVE: CASE EVENT DATE: 2014
